FAERS Safety Report 8432155-6 (Version None)
Quarter: 2012Q2

REPORT INFORMATION
  Report Type: 
  Country: None (occurrence: None)
  Receive Date: 20120613
  Receipt Date: 20120605
  Transmission Date: 20120825
  Serious: Yes (Other)
  Sender: FDA-Public Use
  Company Number: PHHY2012FR048784

PATIENT
  Sex: Male

DRUGS (2)
  1. IMATINIB MESYLATE [Suspect]
     Indication: CHRONIC MYELOID LEUKAEMIA
     Dosage: 400 MG, DAILY
     Route: 048
     Dates: start: 20020901
  2. IMATINIB MESYLATE [Suspect]
     Dosage: 600 MG, DAILY
     Route: 048
     Dates: start: 20120501

REACTIONS (8)
  - DILATATION VENTRICULAR [None]
  - DYSPNOEA [None]
  - MYOCARDIAL ISCHAEMIA [None]
  - ASTHENIA [None]
  - CORONARY ARTERY OCCLUSION [None]
  - CARDIAC FAILURE [None]
  - CARDIOMYOPATHY [None]
  - EJECTION FRACTION DECREASED [None]
